FAERS Safety Report 8790766 (Version 1)
Quarter: 2012Q4

REPORT INFORMATION
  Report Type: Spontaneous
  Country: JP (occurrence: None)
  Receive Date: 20120907
  Receipt Date: 20120907
  Transmission Date: 20130627
  Serious: Yes (Hospitalization, Other)
  Sender: FDA-Public Use
  Company Number: 2012P1055696

PATIENT
  Age: 70 Year
  Sex: Female

DRUGS (1)
  1. PROPYLTHIOURACIL [Suspect]
     Indication: HYPERTHYROIDISM
     Route: 048

REACTIONS (1)
  - Leukocytoclastic vasculitis [None]
